FAERS Safety Report 9581228 (Version 1)
Quarter: 2013Q4

REPORT INFORMATION
  Report Type: Spontaneous
  Country: GB (occurrence: GB)
  Receive Date: 20131002
  Receipt Date: 20131002
  Transmission Date: 20140711
  Serious: Yes (Life-Threatening)
  Sender: FDA-Public Use
  Company Number: PHHY2013GB107242

PATIENT
  Age: 44 Year
  Sex: Male
  Weight: 49.9 kg

DRUGS (6)
  1. DIAZEPAM [Suspect]
     Dates: start: 20130823
  2. PHENYTOIN SODIUM [Concomitant]
     Dates: start: 20130531, end: 20130725
  3. PHENYTOIN SODIUM [Concomitant]
     Dates: start: 20130805, end: 20130902
  4. CO-DYDRAMOL [Concomitant]
     Dates: start: 20130627, end: 20130725
  5. SINGULAIR [Concomitant]
     Dates: start: 20130627, end: 20130725
  6. SINGULAIR [Concomitant]
     Dates: start: 20130805, end: 20130902

REACTIONS (1)
  - Respiratory arrest [Unknown]
